FAERS Safety Report 5217092-2 (Version None)
Quarter: 2007Q1

REPORT INFORMATION
  Report Type: 
  Country: None (occurrence: None)
  Receive Date: 20070124
  Receipt Date: 20070110
  Transmission Date: 20070707
  Serious: Yes (Death, Hospitalization)
  Sender: FDA-Public Use
  Company Number: FR-BRISTOL-MYERS SQUIBB COMPANY-13640107

PATIENT
  Age: 52 Year
  Sex: Female

DRUGS (7)
  1. COUMADIN [Suspect]
     Indication: PHLEBITIS
     Route: 048
     Dates: end: 20061123
  2. ASPIRIN [Interacting]
     Route: 048
  3. FLUOXETINE [Concomitant]
  4. AVLOCARDYL [Concomitant]
  5. NEXIUM [Concomitant]
  6. NOCTRAN [Concomitant]
  7. LAMALINE [Concomitant]

REACTIONS (2)
  - DEATH [None]
  - SUBDURAL HAEMATOMA [None]
